FAERS Safety Report 22637227 (Version 1)
Quarter: 2023Q2

REPORT INFORMATION
  Report Type: Spontaneous
  Country: US (occurrence: None)
  Receive Date: 20230621
  Receipt Date: 20230621
  Transmission Date: 20230721
  Serious: No
  Sender: FDA-Public Use
  Company Number: None

PATIENT
  Age: 63 Year
  Sex: Male
  Weight: 62.6 kg

DRUGS (8)
  1. WELIREG [Suspect]
     Active Substance: BELZUTIFAN
     Indication: Phakomatosis
     Dosage: FREQUENCY : DAILY;?
     Route: 048
     Dates: start: 202110
  2. CALCIUM [Concomitant]
     Active Substance: CALCIUM
  3. VITAMINS [Concomitant]
     Active Substance: VITAMINS
  4. GABAPENTIN [Concomitant]
     Active Substance: GABAPENTIN
  5. IRON [Concomitant]
     Active Substance: IRON
  6. LYRICA [Concomitant]
     Active Substance: PREGABALIN
  7. CANNABIS SATIVA SUBSP. INDICA TOP [Concomitant]
     Active Substance: CANNABIS SATIVA SUBSP. INDICA TOP
  8. TRELEGY ELLIPTA [Concomitant]
     Active Substance: FLUTICASONE FUROATE\UMECLIDINIUM BROMIDE\VILANTEROL TRIFENATATE

REACTIONS (1)
  - Dyspnoea [None]
